FAERS Safety Report 10633384 (Version 1)
Quarter: 2014Q4

REPORT INFORMATION
  Report Type: Spontaneous
  Country: US (occurrence: US)
  Receive Date: 20141205
  Receipt Date: 20141205
  Transmission Date: 20150529
  Serious: No
  Sender: FDA-Public Use
  Company Number: US-BRISTOL-MYERS SQUIBB COMPANY-21623087

PATIENT
  Age: 64 Year
  Sex: Female
  Weight: 65.76 kg

DRUGS (1)
  1. ORENCIA [Suspect]
     Active Substance: ABATACEPT
     Indication: RHEUMATOID ARTHRITIS
     Dosage: NO. OF DOSES:1?LAST DOSE ON 11NOV14?SYRINGE
     Route: 058
     Dates: start: 20141111

REACTIONS (2)
  - Gastric disorder [Unknown]
  - Influenza [Unknown]

NARRATIVE: CASE EVENT DATE: 201411
